FAERS Safety Report 5357284-5 (Version None)
Quarter: 2007Q2

REPORT INFORMATION
  Report Type: 
  Country: None (occurrence: None)
  Receive Date: 20070614
  Receipt Date: 20070607
  Transmission Date: 20071010
  Serious: Yes (Other)
  Sender: FDA-Public Use
  Company Number: CN-JNJFOC-20070601760

PATIENT
  Sex: Female

DRUGS (1)
  1. GYNO- DAKTARIN [Suspect]
     Indication: VAGINAL INFECTION
     Route: 067

REACTIONS (1)
  - ABDOMINAL PAIN LOWER [None]
